FAERS Safety Report 10644991 (Version 1)
Quarter: 2014Q4

REPORT INFORMATION
  Report Type: Spontaneous
  Country: US (occurrence: None)
  Receive Date: 20141210
  Receipt Date: 20141210
  Transmission Date: 20150529
  Serious: No
  Sender: FDA-Public Use
  Company Number: None

PATIENT
  Age: 51 Year
  Sex: Female

DRUGS (1)
  1. HARVONI [Suspect]
     Active Substance: LEDIPASVIR\SOFOSBUVIR
     Dosage: 1, DAILY, PO
     Route: 048
     Dates: start: 201411

REACTIONS (3)
  - Neuropathy peripheral [None]
  - Disease recurrence [None]
  - Fibrosis [None]

NARRATIVE: CASE EVENT DATE: 201411
